FAERS Safety Report 5123355-1 (Version None)
Quarter: 2006Q4

REPORT INFORMATION
  Report Type: 
  Country: None (occurrence: None)
  Receive Date: 20061005
  Receipt Date: 20060927
  Transmission Date: 20070319
  Serious: Yes (Other)
  Sender: FDA-Public Use
  Company Number: 02/00172-SHC

PATIENT
  Age: 28 Year
  Sex: Female

DRUGS (6)
  1. FLUDARA [Suspect]
     Indication: ACUTE MYELOID LEUKAEMIA
     Dosage: 2 COURSES
  2. CYTARABINE [Suspect]
     Indication: ACUTE MYELOID LEUKAEMIA
     Dosage: 2 COURSES
  3. IDARUBICIN HCL [Suspect]
     Indication: ACUTE MYELOID LEUKAEMIA
     Dosage: 2 COURSES
  4. G-CSF (GRANULOCYTE COLONY STIMULATING FACTOR) [Suspect]
     Indication: ACUTE MYELOID LEUKAEMIA
     Dosage: 2 COURSES
  5. DAUNORUBICIN HCL [Suspect]
     Indication: ACUTE MYELOID LEUKAEMIA
     Dosage: 2 COURSES
  6. THIOGUANINE [Suspect]
     Indication: ACUTE MYELOID LEUKAEMIA
     Dosage: 2 COURSES

REACTIONS (3)
  - APLASIA [None]
  - SQUAMOUS CELL CARCINOMA [None]
  - THERAPEUTIC RESPONSE DECREASED [None]
